FAERS Safety Report 9529733 (Version 1)
Quarter: 2013Q3

REPORT INFORMATION
  Report Type: Spontaneous
  Country: US (occurrence: US)
  Receive Date: 20130917
  Receipt Date: 20130917
  Transmission Date: 20140515
  Serious: No
  Sender: FDA-Public Use
  Company Number: US-SANOFI-AVENTIS-2012SA068840

PATIENT
  Age: 60 Year
  Sex: Female
  Weight: 55 kg

DRUGS (2)
  1. HIPREX [Suspect]
     Route: 048
     Dates: start: 20120625
  2. SYNTHROID [Concomitant]

REACTIONS (1)
  - Urine electrophoresis abnormal [Not Recovered/Not Resolved]
